FAERS Safety Report 21977959 (Version 3)
Quarter: 2023Q1

REPORT INFORMATION
  Report Type: Spontaneous
  Country: ES (occurrence: ES)
  Receive Date: 20230210
  Receipt Date: 20230314
  Transmission Date: 20230418
  Serious: No
  Sender: FDA-Public Use
  Company Number: ES-UCBSA-2023006266

PATIENT
  Sex: Female

DRUGS (1)
  1. NEUPRO [Suspect]
     Active Substance: ROTIGOTINE
     Indication: Restless legs syndrome
     Dosage: 2 MILLIGRAM
     Dates: start: 20220501

REACTIONS (6)
  - Erythema [Recovering/Resolving]
  - Pruritus [Recovering/Resolving]
  - Initial insomnia [Unknown]
  - Product dose omission issue [Unknown]
  - Product adhesion issue [Unknown]
  - Drug ineffective [Unknown]
